FAERS Safety Report 22050856 (Version 1)
Quarter: 2023Q1

REPORT INFORMATION
  Report Type: Spontaneous
  Country: US (occurrence: None)
  Receive Date: 20230301
  Receipt Date: 20230301
  Transmission Date: 20230418
  Serious: Yes (Death)
  Sender: FDA-Public Use
  Company Number: None

PATIENT
  Age: 80 Year
  Sex: Male
  Weight: 101.7 kg

DRUGS (12)
  1. ABIRATERONE [Suspect]
     Active Substance: ABIRATERONE
     Indication: Prostate cancer
     Dosage: FREQUENCY : DAILY;?
     Route: 048
  2. AMLODIPINE [Concomitant]
     Active Substance: AMLODIPINE BESYLATE
  3. ASPIRIN [Concomitant]
     Active Substance: ASPIRIN
  4. CALCIUM + D3 [Concomitant]
  5. FUROSEMIDE [Concomitant]
     Active Substance: FUROSEMIDE
  6. LISINOPRIL [Concomitant]
     Active Substance: LISINOPRIL
  7. LUPRON DEPOT [Concomitant]
     Active Substance: LEUPROLIDE ACETATE
  8. METOPROLOL [Concomitant]
     Active Substance: METOPROLOL
  9. OMEPRAZOLE [Concomitant]
     Active Substance: OMEPRAZOLE
  10. RHOPRESSA [Concomitant]
     Active Substance: NETARSUDIL MESYLATE
  11. TRAVATAN Z [Concomitant]
     Active Substance: TRAVOPROST
  12. XGEVA [Concomitant]
     Active Substance: DENOSUMAB

REACTIONS (1)
  - Death [None]
